FAERS Safety Report 12633330 (Version 2)
Quarter: 2016Q3

REPORT INFORMATION
  Report Type: Spontaneous
  Country: US (occurrence: US)
  Receive Date: 20160808
  Receipt Date: 20160808
  Transmission Date: 20161109
  Serious: No
  Sender: FDA-Public Use
  Company Number: US-BEH-2016060598

PATIENT
  Age: 13 Year
  Sex: Male
  Weight: 80 kg

DRUGS (12)
  1. ACETAMINOPHEN. [Concomitant]
     Active Substance: ACETAMINOPHEN
  2. EPIPEN [Concomitant]
     Active Substance: EPINEPHRINE
  3. INTUNIV [Concomitant]
     Active Substance: GUANFACINE HYDROCHLORIDE
  4. PROAIR HFA [Concomitant]
     Active Substance: ALBUTEROL SULFATE
  5. DIPHENHYDRAMINE. [Concomitant]
     Active Substance: DIPHENHYDRAMINE
  6. LIDOCAINE/PRILOCAINE [Concomitant]
     Active Substance: LIDOCAINE\PRILOCAINE
  7. ZYRTEC [Concomitant]
     Active Substance: CETIRIZINE HYDROCHLORIDE
  8. AZELASTINE [Concomitant]
     Active Substance: AZELASTINE
  9. HIZENTRA [Suspect]
     Active Substance: HUMAN IMMUNOGLOBULIN G
     Indication: HYPOGAMMAGLOBULINAEMIA
     Route: 058
  10. ZOLOFT [Concomitant]
     Active Substance: SERTRALINE HYDROCHLORIDE
  11. NASONEX [Concomitant]
     Active Substance: MOMETASONE FUROATE
  12. L-M-X [Concomitant]

REACTIONS (3)
  - Infusion site pruritus [Unknown]
  - Infusion site erythema [Unknown]
  - Infusion site swelling [Unknown]

NARRATIVE: CASE EVENT DATE: 20160102
